FAERS Safety Report 8405017-8 (Version None)
Quarter: 2012Q2

REPORT INFORMATION
  Report Type: 
  Country: None (occurrence: None)
  Receive Date: 20120601
  Receipt Date: 20120109
  Transmission Date: 20120825
  Serious: No
  Sender: FDA-Public Use
  Company Number: US-NOVEN-12US003910

PATIENT
  Sex: Male
  Weight: 32.653 kg

DRUGS (3)
  1. TRILEPTAL [Concomitant]
     Indication: CONVULSION
     Dosage: 300 MG, BID
     Route: 048
  2. MELATONIN [Concomitant]
     Indication: SLEEP DISORDER
     Dosage: 2 MG, QHS
     Route: 048
  3. DAYTRANA [Suspect]
     Indication: ATTENTION DEFICIT/HYPERACTIVITY DISORDER
     Dosage: 20 MG, UNK
     Route: 062
     Dates: start: 20111230

REACTIONS (2)
  - ABNORMAL BEHAVIOUR [None]
  - DECREASED APPETITE [None]
